FAERS Safety Report 9677938 (Version 1)
Quarter: 2013Q4

REPORT INFORMATION
  Report Type: Spontaneous
  Country: GB (occurrence: GB)
  Receive Date: 20131108
  Receipt Date: 20131108
  Transmission Date: 20140711
  Serious: Yes (Life-Threatening)
  Sender: FDA-Public Use
  Company Number: GB-SA-2013SA111390

PATIENT
  Age: 54 Year
  Sex: Male
  Weight: 90 kg

DRUGS (14)
  1. LEFLUNOMIDE [Suspect]
     Indication: ARTHRITIS
     Dosage: ONE TO BE TAKEN AT NIGHT
     Route: 048
     Dates: start: 2005
  2. LEFLUNOMIDE [Suspect]
     Indication: ARTHRITIS
     Dosage: NIGHT
  3. ALLOPURINOL [Concomitant]
  4. FOLIC ACID [Concomitant]
  5. IRBESARTAN [Concomitant]
  6. METFORMIN HYDROCHLORIDE [Concomitant]
     Dosage: TWO 500MG TABLETS TO BE TAKEN THREE TIMES A DAY
  7. DOXAZOSIN MESILATE [Concomitant]
  8. AMLODIPINE [Concomitant]
  9. ASPIRIN [Concomitant]
  10. OMEPRAZOLE [Concomitant]
     Dosage: AT NIGHT
  11. ATORVASTATIN [Concomitant]
     Dosage: TWO 40MG TABLETS TO BE TAKEN DAILY
  12. SITAGLIPTIN PHOSPHATE [Concomitant]
  13. BISOPROLOL FUMARATE [Concomitant]
  14. LANTUS [Concomitant]
     Dosage: ONE PRE-FILLED DISPOSABLE INJECTION TO USE AS DIRECTED

REACTIONS (1)
  - Cerebral sarcoidosis [Unknown]
